FAERS Safety Report 4394088-4 (Version None)
Quarter: 2004Q3

REPORT INFORMATION
  Report Type: 
  Country: None (occurrence: None)
  Receive Date: 20040708
  Receipt Date: 20040708
  Transmission Date: 20050211
  Serious: No
  Sender: FDA-Public Use
  Company Number: None

PATIENT
  Age: 53 Year
  Sex: Female
  Weight: 68.0396 kg

DRUGS (12)
  1. OXCYODONE ER 80 MG TEVA [Suspect]
     Dosage: 80 MG TWICE A DAY ORAL
     Route: 048
     Dates: start: 20040610, end: 20040707
  2. OXYCONTIN [Concomitant]
  3. CYCLOBENZAPRINE HCL [Concomitant]
  4. RANITIDINE [Concomitant]
  5. LORAZEPAM [Concomitant]
  6. NEURONTIN [Concomitant]
  7. ALBUTEROL [Concomitant]
  8. IPRATROPIUM BROMIDE [Concomitant]
  9. WARFARIN SODIUM [Concomitant]
  10. AMITRIPTYLINE HCL [Concomitant]
  11. ZOLOFT [Concomitant]
  12. CARDIZEM LA [Concomitant]

REACTIONS (7)
  - DRUG INEFFECTIVE [None]
  - DRUG WITHDRAWAL SYNDROME [None]
  - DYSKINESIA [None]
  - HYPOAESTHESIA [None]
  - PAIN EXACERBATED [None]
  - PALPITATIONS [None]
  - SKIN DISORDER [None]
